APPROVED DRUG PRODUCT: THERMAZENE
Active Ingredient: SILVER SULFADIAZINE
Strength: 1%
Dosage Form/Route: CREAM;TOPICAL
Application: N018810 | Product #001 | TE Code: AB
Applicant: THEPHARMANETWORK LLC
Approved: Dec 23, 1985 | RLD: No | RS: No | Type: RX